FAERS Safety Report 9128718 (Version 3)
Quarter: 2013Q2

REPORT INFORMATION
  Report Type: Spontaneous
  Country: US (occurrence: US)
  Receive Date: 20130125
  Receipt Date: 20130523
  Transmission Date: 20140414
  Serious: No
  Sender: FDA-Public Use
  Company Number: US-ASTRAZENECA-2011SE66077

PATIENT
  Age: 68 Year
  Sex: Female
  Weight: 57.2 kg

DRUGS (6)
  1. RHINOCORT AQUA [Suspect]
     Dosage: 32 MCG, 1 SPRAY, TWO TIMES A DAY
     Route: 045
  2. SYMBICORT [Suspect]
     Indication: BRONCHIAL DISORDER
     Dosage: 160/4.5, 1 PUFF, BID
     Route: 055
     Dates: start: 20130112
  3. SYMBICORT [Suspect]
     Indication: COUGH
     Dosage: 160/4.5, 1 PUFF, BID
     Route: 055
     Dates: start: 20130112
  4. SYMBICORT [Suspect]
     Indication: CHRONIC OBSTRUCTIVE PULMONARY DISEASE
     Dosage: 160/4.5, 1 PUFF, BID
     Route: 055
     Dates: start: 20130112
  5. SYNTHROID [Concomitant]
     Indication: HYPOTHYROIDISM
     Route: 048
     Dates: start: 2010
  6. SYNTHROID [Concomitant]
     Indication: MEDICAL DEVICE CHANGE
     Route: 048
     Dates: start: 2010

REACTIONS (8)
  - Dry mouth [Unknown]
  - Cough [Unknown]
  - Dysphonia [Unknown]
  - Dysphonia [Not Recovered/Not Resolved]
  - Incorrect dose administered by device [Unknown]
  - Circumstance or information capable of leading to medication error [Unknown]
  - Off label use [Unknown]
  - Off label use [Unknown]
